FAERS Safety Report 6544263-5 (Version None)
Quarter: 2010Q1

REPORT INFORMATION
  Report Type: 
  Country: None (occurrence: None)
  Receive Date: 20100119
  Receipt Date: 20100119
  Transmission Date: 20100710
  Serious: No
  Sender: FDA-Public Use
  Company Number: None

PATIENT
  Age: 42 Year
  Sex: Female
  Weight: 68.0396 kg

DRUGS (2)
  1. ZICAM COLD REMEDY GEL SWAB GEL SWAB [Suspect]
     Indication: NASOPHARYNGITIS
     Dosage: 1 SPRAY EACH NOSTRIL 1 TIME NASAL
     Route: 045
     Dates: start: 20090301, end: 20090301
  2. ZICAM COLD REMEDY NASAL GEL NASAL GEL [Suspect]
     Indication: NASOPHARYNGITIS
     Dosage: 1 SWAB EACH NOSTRIL 1 TIME NASAL
     Route: 045
     Dates: start: 20090301, end: 20090301

REACTIONS (1)
  - ANOSMIA [None]
